FAERS Safety Report 20592740 (Version 1)
Quarter: 2022Q1

REPORT INFORMATION
  Report Type: Spontaneous
  Country: US (occurrence: None)
  Receive Date: 20220314
  Receipt Date: 20220314
  Transmission Date: 20220423
  Serious: No
  Sender: FDA-Public Use
  Company Number: US-ROCHE-2941566

PATIENT
  Sex: Female

DRUGS (3)
  1. XOLAIR [Suspect]
     Active Substance: OMALIZUMAB
     Indication: Chronic spontaneous urticaria
     Dosage: 150 MG IN EACH ARM
     Route: 030
     Dates: start: 20211015
  2. ZYRTEC (UNITED STATES) [Concomitant]
     Indication: Hypersensitivity
     Dosage: 2 TABLETS IN THE MORNING AND 2 TABLETS IN THE EVENING
  3. PEPCID [Concomitant]
     Active Substance: FAMOTIDINE

REACTIONS (4)
  - Off label use [Unknown]
  - Pharyngeal swelling [Recovered/Resolved]
  - Urticaria [Recovering/Resolving]
  - Rash [Not Recovered/Not Resolved]

NARRATIVE: CASE EVENT DATE: 20211015
